FAERS Safety Report 7546727-4 (Version None)
Quarter: 2011Q2

REPORT INFORMATION
  Report Type: 
  Country: None (occurrence: None)
  Receive Date: 20110614
  Receipt Date: 20110606
  Transmission Date: 20111010
  Serious: Yes (Hospitalization)
  Sender: FDA-Public Use
  Company Number: A0917169A

PATIENT
  Age: 62 Year
  Sex: Female

DRUGS (4)
  1. ALLERGY MEDICATION [Concomitant]
  2. XELODA [Suspect]
  3. TYKERB [Suspect]
     Indication: BREAST CANCER
     Dosage: 1250MG PER DAY
     Route: 048
     Dates: start: 20110305
  4. RADIATION THERAPY [Concomitant]

REACTIONS (13)
  - WHEELCHAIR USER [None]
  - MYALGIA [None]
  - NAUSEA [None]
  - WALKING AID USER [None]
  - VISUAL ACUITY REDUCED [None]
  - MUSCLE SPASMS [None]
  - VOMITING [None]
  - ARTHRALGIA [None]
  - RETCHING [None]
  - ANXIETY [None]
  - DIARRHOEA [None]
  - ORAL DISCOMFORT [None]
  - BLOOD SODIUM DECREASED [None]
